FAERS Safety Report 7097554-6 (Version None)
Quarter: 2010Q4

REPORT INFORMATION
  Report Type: 
  Country: None (occurrence: None)
  Receive Date: 20101111
  Receipt Date: 20101101
  Transmission Date: 20110411
  Serious: Yes (Other)
  Sender: FDA-Public Use
  Company Number: US-US-EMD SERONO, INC.-7025580

PATIENT
  Sex: Female

DRUGS (6)
  1. REBIF [Suspect]
     Indication: PRODUCT USED FOR UNKNOWN INDICATION
     Route: 058
     Dates: start: 20090420
  2. NEURONTIN [Concomitant]
  3. ZANAFLEX [Concomitant]
  4. BACLOFEN [Concomitant]
  5. KLONOPIN [Concomitant]
  6. VITAMIN D SUPPLEMENT [Concomitant]

REACTIONS (6)
  - BEDRIDDEN [None]
  - CENTRAL NERVOUS SYSTEM LESION [None]
  - MUSCULAR WEAKNESS [None]
  - SOMNOLENCE [None]
  - SPEECH DISORDER [None]
  - TREMOR [None]
